FAERS Safety Report 20776013 (Version 6)
Quarter: 2022Q3

REPORT INFORMATION
  Report Type: Spontaneous
  Country: HR (occurrence: HR)
  Receive Date: 20220502
  Receipt Date: 20220713
  Transmission Date: 20221027
  Serious: Yes (Life-Threatening, Other)
  Sender: FDA-Public Use
  Company Number: HR-FARMEX-2022-0047

PATIENT
  Age: 69 Year
  Sex: Female

DRUGS (11)
  1. ZOLEDRONIC ACID [Suspect]
     Active Substance: ZOLEDRONIC ACID
     Indication: Breast cancer
     Dosage: 4 MILLIGRAM, Q3MONTHS (4 MG IV EVERY 3 MONTH/1 TRIMESTER)
     Route: 042
     Dates: start: 201806, end: 201905
  2. ZOLEDRONIC ACID [Suspect]
     Active Substance: ZOLEDRONIC ACID
     Indication: HER2 negative breast cancer
  3. EXEMESTANE [Suspect]
     Active Substance: EXEMESTANE
     Indication: HER2 negative breast cancer
     Dosage: UNK
     Route: 065
  4. LETROZOLE [Suspect]
     Active Substance: LETROZOLE
     Indication: Breast cancer metastatic
     Dosage: 2.5 MILLIGRAM, QD
     Route: 065
     Dates: start: 201806, end: 201905
  5. LETROZOLE [Suspect]
     Active Substance: LETROZOLE
     Indication: HER2 negative breast cancer
  6. FULVESTRANT [Suspect]
     Active Substance: FULVESTRANT
     Indication: Breast cancer metastatic
     Dosage: ON DAYS 1 AND 15 OF CYCLE 1; THEN ON DAY 1 OF SUBSEQUENT 28-DAY CYCLES
     Route: 030
     Dates: start: 201905, end: 202010
  7. FULVESTRANT [Suspect]
     Active Substance: FULVESTRANT
     Indication: HER2 negative breast cancer
  8. FULVESTRANT [Suspect]
     Active Substance: FULVESTRANT
     Indication: Hormone receptor positive HER2 negative breast cancer
  9. PALBOCICLIB [Suspect]
     Active Substance: PALBOCICLIB
     Indication: Breast cancer metastatic
     Dosage: 125 MILLIGRAM QD (DAILY FOR 3 WEEKS FOLLOWED BY WEEK OFF OVER 28-DAY CYCLES, RECEIVED 18 CYCLES)
     Route: 065
     Dates: start: 201905, end: 202010
  10. PALBOCICLIB [Suspect]
     Active Substance: PALBOCICLIB
     Indication: HER2 negative breast cancer
  11. PALBOCICLIB [Suspect]
     Active Substance: PALBOCICLIB
     Indication: Hormone receptor positive HER2 negative breast cancer

REACTIONS (8)
  - Pleural effusion [Recovered/Resolved]
  - Metastases to liver [Recovered/Resolved]
  - Metastases to bone [Recovered/Resolved]
  - Tumour marker increased [Recovered/Resolved]
  - Neutropenia [Unknown]
  - Breast cancer metastatic [Unknown]
  - Malignant neoplasm progression [Unknown]
  - Drug ineffective [Unknown]

NARRATIVE: CASE EVENT DATE: 20190501
